FAERS Safety Report 8034036-9 (Version None)
Quarter: 2011Q4

REPORT INFORMATION
  Report Type: 
  Country: None (occurrence: None)
  Receive Date: 20111202
  Receipt Date: 20100208
  Transmission Date: 20120403
  Serious: Yes (Hospitalization)
  Sender: FDA-Public Use
  Company Number: 2010SP007773

PATIENT
  Age: 43 Year
  Sex: Female
  Weight: 95.2554 kg

DRUGS (1)
  1. NUVARING [Suspect]
     Indication: CONTRACEPTION
     Dates: start: 20030101, end: 20040701

REACTIONS (6)
  - ENDOMETRIOSIS [None]
  - HEADACHE [None]
  - FOOT DEFORMITY [None]
  - MENORRHAGIA [None]
  - PELVIC PAIN [None]
  - PULMONARY EMBOLISM [None]
